FAERS Safety Report 6194886-0 (Version None)
Quarter: 2009Q2

REPORT INFORMATION
  Report Type: 
  Country: None (occurrence: None)
  Receive Date: 20090515
  Receipt Date: 20090515
  Transmission Date: 20091009
  Serious: Yes (Disabling, Other)
  Sender: FDA-Public Use
  Company Number: None

PATIENT
  Age: 46 Year
  Sex: Female
  Weight: 53.978 kg

DRUGS (1)
  1. GRANDILIUM ? -MRI/MRA DYE- [Suspect]
     Indication: NERVOUS SYSTEM DISORDER
     Dates: start: 20061023, end: 20061023

REACTIONS (8)
  - ARTHROPATHY [None]
  - BLINDNESS [None]
  - BURNING SENSATION [None]
  - DRUG INEFFECTIVE [None]
  - HEADACHE [None]
  - NERVOUS SYSTEM DISORDER [None]
  - PRURITUS [None]
  - UNEVALUABLE EVENT [None]
